FAERS Safety Report 6749542-4 (Version None)
Quarter: 2010Q2

REPORT INFORMATION
  Report Type: 
  Country: None (occurrence: None)
  Receive Date: 20100601
  Receipt Date: 20100520
  Transmission Date: 20101027
  Serious: Yes (Hospitalization)
  Sender: FDA-Public Use
  Company Number: US-ASTRAZENECA-2010SE23205

PATIENT
  Age: 50 Year
  Sex: Male

DRUGS (1)
  1. LIDOCAINE [Suspect]
     Indication: INFUSION RELATED REACTION
     Dosage: 80 ML OF UNDILUTED TWO PERCENT VISCOUS LIDOCAINE (16 MG/KG)

REACTIONS (14)
  - CONFUSIONAL STATE [None]
  - CYANOSIS [None]
  - DISORIENTATION [None]
  - DIZZINESS [None]
  - DRUG TOXICITY [None]
  - FEELING DRUNK [None]
  - INTENTIONAL DRUG MISUSE [None]
  - LEFT VENTRICULAR HYPERTROPHY [None]
  - PALPITATIONS [None]
  - PRESYNCOPE [None]
  - SCAR [None]
  - SCROTAL SWELLING [None]
  - SOMNOLENCE [None]
  - SYNCOPE [None]
